FAERS Safety Report 17300993 (Version 8)
Quarter: 2024Q1

REPORT INFORMATION
  Report Type: Spontaneous
  Country: US (occurrence: US)
  Receive Date: 20200122
  Receipt Date: 20240312
  Transmission Date: 20240410
  Serious: Yes (Other)
  Sender: FDA-Public Use
  Company Number: US-PFIZER INC-2019428454

PATIENT
  Age: 88 Year
  Sex: Female
  Weight: 56.698 kg

DRUGS (3)
  1. ESTRING [Suspect]
     Active Substance: ESTRADIOL
     Indication: Vulvovaginal discomfort
     Dosage: INSERTS RING VAGINALLY EVERY 3 MONTHS
     Route: 067
     Dates: start: 201909
  2. LEVOTHYROXINE [Concomitant]
     Active Substance: LEVOTHYROXINE\LEVOTHYROXINE SODIUM
     Dosage: UNK
  3. ATORVASTATIN [Concomitant]
     Active Substance: ATORVASTATIN
     Dosage: UNK

REACTIONS (2)
  - Intracranial aneurysm [Unknown]
  - Hypoacusis [Unknown]

NARRATIVE: CASE EVENT DATE: 20190901
